FAERS Safety Report 8010655-0 (Version None)
Quarter: 2011Q4

REPORT INFORMATION
  Report Type: 
  Country: None (occurrence: None)
  Receive Date: 20111228
  Receipt Date: 20111215
  Transmission Date: 20120403
  Serious: Yes (Other)
  Sender: FDA-Public Use
  Company Number: PHHY2011CA89023

PATIENT
  Sex: Female

DRUGS (1)
  1. SANDOSTATIN LAR [Suspect]
     Indication: NEUROENDOCRINE TUMOUR
     Dosage: 30 MG, EVERY TWO WEEKS
     Route: 030
     Dates: start: 20110526

REACTIONS (3)
  - NEOPLASM PROGRESSION [None]
  - MENSTRUATION DELAYED [None]
  - NEOPLASM MALIGNANT [None]
